FAERS Safety Report 8018413-8 (Version None)
Quarter: 2012Q1

REPORT INFORMATION
  Report Type: 
  Country: None (occurrence: None)
  Receive Date: 20120103
  Receipt Date: 20111228
  Transmission Date: 20120608
  Serious: Yes (Death, Other)
  Sender: FDA-Public Use
  Company Number: US-PFIZER INC-2011254825

PATIENT
  Age: 70 Year
  Sex: Male

DRUGS (1)
  1. TIKOSYN [Suspect]
     Dosage: UNK
     Route: 048

REACTIONS (1)
  - BONE NEOPLASM MALIGNANT [None]
